FAERS Safety Report 6181254-0 (Version None)
Quarter: 2009Q2

REPORT INFORMATION
  Report Type: 
  Country: None (occurrence: None)
  Receive Date: 20090501
  Receipt Date: 20090331
  Transmission Date: 20091009
  Serious: No
  Sender: FDA-Public Use
  Company Number: 2009002755

PATIENT
  Age: 64 Year
  Sex: Male

DRUGS (1)
  1. TREANDA [Suspect]
     Indication: NON-HODGKIN'S LYMPHOMA
     Dosage: (120 MG/M2) , INTRAVENOUS
     Route: 042
     Dates: start: 20090319

REACTIONS (2)
  - PYREXIA [None]
  - RASH MACULO-PAPULAR [None]
